FAERS Safety Report 4638171-4 (Version None)
Quarter: 2005Q2

REPORT INFORMATION
  Report Type: 
  Country: None (occurrence: None)
  Receive Date: 20050415
  Receipt Date: 20050405
  Transmission Date: 20051028
  Serious: No
  Sender: FDA-Public Use
  Company Number: 2005UW02126

PATIENT
  Age: 53 Year
  Sex: Female
  Weight: 63.5036 kg

DRUGS (3)
  1. CRESTOR [Suspect]
     Indication: BLOOD CHOLESTEROL INCREASED
     Dosage: 5 MG QD PO
     Route: 048
  2. CRESTOR [Suspect]
     Indication: BLOOD CHOLESTEROL INCREASED
     Dosage: 10 MG QD PO
     Route: 048
     Dates: start: 20041210, end: 20050106
  3. GENERAL ANESTHESIA [Suspect]

REACTIONS (4)
  - ANAESTHETIC COMPLICATION [None]
  - CHOLELITHIASIS [None]
  - LIVER FUNCTION TEST ABNORMAL [None]
  - RECTAL FISTULA REPAIR [None]
